FAERS Safety Report 5088864-2 (Version None)
Quarter: 2006Q3

REPORT INFORMATION
  Report Type: 
  Country: None (occurrence: None)
  Receive Date: 20060825
  Receipt Date: 20060814
  Transmission Date: 20061208
  Serious: Yes (Hospitalization)
  Sender: FDA-Public Use
  Company Number: BE-ROCHE-460045

PATIENT
  Age: 60 Year
  Sex: Female

DRUGS (5)
  1. MEFLOQUINE HCL [Suspect]
     Indication: PROPHYLAXIS
     Route: 065
  2. MEFLOQUINE HCL [Suspect]
     Route: 065
  3. ASPIRIN [Concomitant]
     Dosage: REPORTED AS: CHRONIC MEDICATION - LOW DOSE ASPIRIN.
  4. BISOPROLOL FUMARATE [Concomitant]
     Indication: HYPERTENSION
     Dosage: REPORTED AS CHRONIC MEDICAITON.
  5. CIPROFIBRATUM [Concomitant]
     Dosage: REPORTED AS CHRONIC MEDICAITON.

REACTIONS (1)
  - PNEUMONITIS [None]
